FAERS Safety Report 4604596-6 (Version None)
Quarter: 2005Q1

REPORT INFORMATION
  Report Type: 
  Country: None (occurrence: None)
  Receive Date: 20050310
  Receipt Date: 20050107
  Transmission Date: 20050727
  Serious: Yes (Life-Threatening, Hospitalization)
  Sender: FDA-Public Use
  Company Number: US-MERCK-0501USA00739

PATIENT
  Age: 74 Year
  Sex: Female

DRUGS (15)
  1. VIOXX [Suspect]
     Indication: ARTHRITIS
     Route: 048
     Dates: end: 20040930
  2. VIOXX [Suspect]
     Route: 048
     Dates: end: 20030701
  3. VIOXX [Suspect]
     Route: 048
  4. ZOLOFT [Concomitant]
     Route: 065
  5. PRAVACHOL [Concomitant]
     Route: 065
  6. SYNTHROID [Concomitant]
     Route: 065
  7. COREG [Concomitant]
     Route: 065
  8. AVAPRO [Concomitant]
     Route: 065
  9. PLAVIX [Concomitant]
     Route: 065
  10. DETROL LA [Concomitant]
     Route: 065
  11. ASPIRIN [Concomitant]
     Route: 065
  12. VITAMINS (UNSPECIFIED) [Concomitant]
     Route: 065
  13. UBIDECARENONE [Concomitant]
     Route: 065
  14. ARIMIDEX [Concomitant]
     Route: 065
  15. BENADRYL [Concomitant]
     Route: 065

REACTIONS (14)
  - ACUTE CORONARY SYNDROME [None]
  - ANXIETY [None]
  - APATHY [None]
  - ARTHRALGIA [None]
  - ATRIOVENTRICULAR BLOCK [None]
  - BACK PAIN [None]
  - CORONARY ARTERY ATHEROSCLEROSIS [None]
  - DEPRESSION [None]
  - DYSLIPIDAEMIA [None]
  - FATIGUE [None]
  - HYPERCHOLESTEROLAEMIA [None]
  - HYPERTENSION [None]
  - MYOCARDIAL INFARCTION [None]
  - SINUS BRADYCARDIA [None]
